FAERS Safety Report 7930830-0 (Version None)
Quarter: 2011Q4

REPORT INFORMATION
  Report Type: 
  Country: None (occurrence: None)
  Receive Date: 20111121
  Receipt Date: 20111117
  Transmission Date: 20120403
  Serious: Yes (Other)
  Sender: FDA-Public Use
  Company Number: US-PFIZER INC-2011001931

PATIENT
  Sex: Male
  Weight: 73.469 kg

DRUGS (10)
  1. NORCO [Concomitant]
     Indication: FIBROMYALGIA
     Dosage: 5/325 MG
  2. SYMBICORT [Concomitant]
     Indication: CHRONIC OBSTRUCTIVE PULMONARY DISEASE
  3. COGENTIN [Concomitant]
     Indication: BIPOLAR DISORDER
     Dosage: UNK
  4. CHANTIX [Suspect]
     Indication: SMOKING CESSATION THERAPY
     Dosage: 0.5 MG, 1X/DAY
     Route: 048
     Dates: start: 20100901, end: 20101001
  5. CHANTIX [Suspect]
     Dosage: 0.5 MG, 2X/DAY
     Dates: start: 20110101, end: 20110101
  6. SYMBICORT [Concomitant]
     Indication: DYSPNOEA
     Dosage: UNK
  7. SYMBICORT [Concomitant]
     Indication: ASTHMA
  8. CHANTIX [Suspect]
     Dosage: UNK
     Dates: start: 20110101, end: 20110101
  9. ATIVAN [Concomitant]
     Indication: STRESS
     Dosage: 0.5 MG, 2X/DAY
  10. RISPERDAL [Concomitant]
     Dosage: UNK

REACTIONS (4)
  - PHARYNGEAL OEDEMA [None]
  - THROAT TIGHTNESS [None]
  - LUNG NEOPLASM [None]
  - LARGE CELL CARCINOMA OF THE RESPIRATORY TRACT STAGE UNSPECIFIED [None]
